FAERS Safety Report 24978847 (Version 2)
Quarter: 2025Q1

REPORT INFORMATION
  Report Type: Spontaneous
  Country: US (occurrence: US)
  Receive Date: 20250218
  Receipt Date: 20250325
  Transmission Date: 20250408
  Serious: No
  Sender: BOEHRINGER INGELHEIM
  Company Number: US-Komodo Health-a23aa000005qSJuAAM

PATIENT
  Age: 85 Year
  Sex: Female

DRUGS (1)
  1. STIOLTO RESPIMAT [Suspect]
     Active Substance: OLODATEROL HYDROCHLORIDE\TIOTROPIUM BROMIDE MONOHYDRATE
     Indication: Dyspnoea

REACTIONS (2)
  - Headache [Not Recovered/Not Resolved]
  - Intentional device use issue [Unknown]

NARRATIVE: CASE EVENT DATE: 20250214
